FAERS Safety Report 8504174-2 (Version None)
Quarter: 2012Q2

REPORT INFORMATION
  Report Type: 
  Country: None (occurrence: None)
  Receive Date: 20120405
  Receipt Date: 20090730
  Transmission Date: 20120825
  Serious: Yes (Other)
  Sender: FDA-Public Use
  Company Number: PHEH2009US08538

PATIENT
  Age: 66 Year
  Sex: Female
  Weight: 44.4 kg

DRUGS (5)
  1. PROTONIX [Concomitant]
  2. TORADOL [Concomitant]
  3. ESTRADIOL [Concomitant]
  4. TRAMADOL HCL [Concomitant]
  5. RECLAST [Suspect]
     Indication: OSTEOPOROSIS
     Dosage: 5MG IV ONCE YEARLY
     Dates: start: 20090721

REACTIONS (4)
  - SPONDYLITIS [None]
  - SPINAL OSTEOARTHRITIS [None]
  - INFLUENZA LIKE ILLNESS [None]
  - BONE PAIN [None]
